FAERS Safety Report 12349177 (Version 4)
Quarter: 2018Q2

REPORT INFORMATION
  Report Type: Report from Study
  Country: BR (occurrence: BR)
  Receive Date: 20160509
  Receipt Date: 20180417
  Transmission Date: 20180711
  Serious: Yes (Other)
  Sender: FDA-Public Use
  Company Number: PHHY2016BR063699

PATIENT
  Age: 26 Year
  Sex: Female
  Weight: 55 kg

DRUGS (5)
  1. EXJADE [Suspect]
     Active Substance: DEFERASIROX
     Dosage: 2 DF (20 MG/KG), QD
     Route: 048
     Dates: start: 20160512
  2. EXJADE [Suspect]
     Active Substance: DEFERASIROX
     Indication: THALASSAEMIA
     Dosage: 2 DF (20 MG/KG), QD
     Route: 048
     Dates: start: 20070820, end: 20160501
  3. EXJADE [Suspect]
     Active Substance: DEFERASIROX
     Dosage: 4 DF, QD (500 MG 4 TABLETS A DAY )
     Route: 048
     Dates: end: 2017
  4. EXJADE [Suspect]
     Active Substance: DEFERASIROX
     Dosage: 2 DF (20 MG/KG) EVERY OTHER DAY
     Route: 048
  5. MINIAN [Concomitant]
     Indication: CONTRACEPTION
     Dosage: 1 DF, QD
     Route: 048

REACTIONS (18)
  - Abdominal pain upper [Recovered/Resolved]
  - Malaise [Recovered/Resolved]
  - Dyspepsia [Recovering/Resolving]
  - Abdominal pain upper [Unknown]
  - Haematemesis [Recovered/Resolved]
  - Gastrooesophageal reflux disease [Unknown]
  - Gastritis [Unknown]
  - Gastrointestinal pain [Unknown]
  - Dengue fever [Recovered/Resolved]
  - Nausea [Unknown]
  - Hiatus hernia [Unknown]
  - Gastrointestinal ulcer [Recovering/Resolving]
  - Intervertebral disc protrusion [Unknown]
  - Gastritis [Recovered/Resolved]
  - Abdominal discomfort [Unknown]
  - Pyrexia [Recovered/Resolved]
  - Vomiting [Recovered/Resolved]
  - Oesophagitis [Unknown]

NARRATIVE: CASE EVENT DATE: 2015
